FAERS Safety Report 16955297 (Version 1)
Quarter: 2019Q4

REPORT INFORMATION
  Report Type: Spontaneous
  Country: ES (occurrence: ES)
  Receive Date: 20191024
  Receipt Date: 20191024
  Transmission Date: 20200122
  Serious: Yes (Hospitalization)
  Sender: FDA-Public Use
  Company Number: ES-TEVA-2019-ES-1125842

PATIENT
  Age: 62 Year
  Sex: Male

DRUGS (4)
  1. RABEPRAZOL (1105A) [Concomitant]
     Active Substance: RABEPRAZOLE
     Indication: HAEMATOCHEZIA
     Route: 048
     Dates: start: 20150708
  2. CAPECITABINA (1224A) [Suspect]
     Active Substance: CAPECITABINE
     Indication: COLORECTAL ADENOCARCINOMA
     Dosage: 2000 MILLIGRAM
     Route: 050
     Dates: start: 20181221, end: 20190101
  3. TOUJEO 300 UNIDADES/ML SOLUCION INYECTABLE EN PLUMA PRECARGADA 3 PLUMA [Concomitant]
     Indication: TYPE 2 DIABETES MELLITUS
     Route: 058
     Dates: start: 20181026
  4. LORAZEPAM (1864A) [Concomitant]
     Active Substance: LORAZEPAM
     Indication: ANXIETY
     Route: 048
     Dates: start: 20140814

REACTIONS (2)
  - Gastrointestinal toxicity [Recovered/Resolved]
  - Diarrhoea [Recovered/Resolved]

NARRATIVE: CASE EVENT DATE: 20190102
